FAERS Safety Report 9523466 (Version 1)
Quarter: 2013Q3

REPORT INFORMATION
  Report Type: Spontaneous
  Country: IT (occurrence: IT)
  Receive Date: 20130913
  Receipt Date: 20130913
  Transmission Date: 20140515
  Serious: Yes (Hospitalization)
  Sender: FDA-Public Use
  Company Number: PHHY2013IT099169

PATIENT
  Sex: Female

DRUGS (4)
  1. METHOTREXATE [Suspect]
     Indication: RHEUMATOID ARTHRITIS
     Dosage: 15 MG, QW
     Route: 030
     Dates: start: 20060101, end: 20120919
  2. ORENCIA [Suspect]
     Indication: RHEUMATOID ARTHRITIS
     Dosage: 500 MG, QD
     Route: 042
     Dates: start: 20111017, end: 20130411
  3. NICOZID [Concomitant]
     Indication: LATENT TUBERCULOSIS
     Dosage: 200 MG, UNK
  4. MOBIC [Concomitant]
     Indication: RHEUMATOID ARTHRITIS
     Dosage: 15 MG, UNK

REACTIONS (1)
  - Invasive lobular breast carcinoma [Recovered/Resolved with Sequelae]
